FAERS Safety Report 4614142-9 (Version None)
Quarter: 2005Q1

REPORT INFORMATION
  Report Type: 
  Country: None (occurrence: None)
  Receive Date: 20050315
  Receipt Date: 20050301
  Transmission Date: 20050727
  Serious: Yes (Hospitalization)
  Sender: FDA-Public Use
  Company Number: 2005039137

PATIENT
  Age: 17 Year
  Sex: Female

DRUGS (1)
  1. BENADRYL [Suspect]
     Indication: SUICIDE ATTEMPT
     Dosage: 4 X 50 MG CAPSULES, ONCE, INTRAVENOUS
     Route: 042

REACTIONS (30)
  - ALANINE AMINOTRANSFERASE INCREASED [None]
  - ASPARTATE AMINOTRANSFERASE INCREASED [None]
  - BLOOD BILIRUBIN INCREASED [None]
  - BLOOD PH DECREASED [None]
  - BLOOD PRESSURE DECREASED [None]
  - BUNDLE BRANCH BLOCK RIGHT [None]
  - CENTRAL VENOUS PRESSURE INCREASED [None]
  - CYANOSIS [None]
  - DILATATION VENTRICULAR [None]
  - DRUG LEVEL ABOVE THERAPEUTIC [None]
  - DYSPNOEA [None]
  - ELECTROCARDIOGRAM QRS COMPLEX ABNORMAL [None]
  - ELECTROCARDIOGRAM ST-T CHANGE [None]
  - GAMMA-GLUTAMYLTRANSFERASE INCREASED [None]
  - HEART SOUNDS ABNORMAL [None]
  - HEPATIC ENZYME INCREASED [None]
  - INTERCOSTAL RETRACTION [None]
  - MEDICATION ERROR [None]
  - MYOCARDIAL ISCHAEMIA [None]
  - PCO2 DECREASED [None]
  - PO2 DECREASED [None]
  - PULSE ABNORMAL [None]
  - RESPIRATORY RATE INCREASED [None]
  - RIGHT VENTRICULAR SYSTOLIC PRESSURE INCREASED [None]
  - SHOCK [None]
  - SINUS TACHYCARDIA [None]
  - SPEECH DISORDER [None]
  - SUICIDE ATTEMPT [None]
  - TRICUSPID VALVE INCOMPETENCE [None]
  - VENTRICULAR TACHYCARDIA [None]
